FAERS Safety Report 15881269 (Version 2)
Quarter: 2019Q1

REPORT INFORMATION
  Report Type: Spontaneous
  Country: US (occurrence: US)
  Receive Date: 20190128
  Receipt Date: 20190312
  Transmission Date: 20190417
  Serious: Yes (Other)
  Sender: FDA-Public Use
  Company Number: US-ACTELION-A-US2019-185247

PATIENT
  Sex: Male

DRUGS (21)
  1. MONTELUKAST [Concomitant]
     Active Substance: MONTELUKAST SODIUM
     Dosage: 10 MG, QD
     Route: 048
  2. OMEGA 3 [Concomitant]
     Active Substance: OMEGA-3 FATTY ACIDS
     Dosage: 1200 MG, QPM
     Route: 048
  3. MULTIVITAMIN [Concomitant]
     Active Substance: VITAMINS
     Dosage: 1 TABLET, QD
     Route: 048
  4. NOVOLOG [Concomitant]
     Active Substance: INSULIN ASPART
     Dosage: 12 UNITS, BID
     Route: 058
  5. IPRATROPIUM [Concomitant]
     Active Substance: IPRATROPIUM
     Dosage: 2 SPRAY, BID
     Route: 055
  6. CASODEX [Concomitant]
     Active Substance: BICALUTAMIDE
     Dosage: 50 MG, QD
     Route: 048
  7. OPSUMIT [Suspect]
     Active Substance: MACITENTAN
     Indication: PULMONARY ARTERIAL HYPERTENSION
     Dosage: 10 MG, QD
     Route: 048
     Dates: start: 20170627
  8. ROSUVASTATIN. [Concomitant]
     Active Substance: ROSUVASTATIN
     Dosage: 20 MG, QPM
     Route: 048
  9. ASCORBIC ACID. [Concomitant]
     Active Substance: ASCORBIC ACID
     Dosage: 1000 MG, QD
     Route: 048
  10. ELIGARD [Concomitant]
     Active Substance: LEUPROLIDE ACETATE
     Dosage: 22.5 MG Q4MONTHS
     Route: 058
  11. INSULIN GLARGINE [Concomitant]
     Active Substance: INSULIN GLARGINE
     Dosage: 32 UNITS QAM
     Route: 058
  12. OXYGEN. [Concomitant]
     Active Substance: OXYGEN
     Dosage: 2 L/MIN
  13. METOPROLOL. [Concomitant]
     Active Substance: METOPROLOL
     Dosage: 12.5 MG (0.5 TAB) BID
  14. SILDENAFIL. [Concomitant]
     Active Substance: SILDENAFIL
     Indication: PULMONARY ARTERIAL HYPERTENSION
     Dosage: 20 MG, TID
  15. SINGULAIR [Concomitant]
     Active Substance: MONTELUKAST SODIUM
  16. POTASSIUM CHLORIDE. [Concomitant]
     Active Substance: POTASSIUM CHLORIDE
     Dosage: 10 MEQ
  17. TORSEMIDE. [Concomitant]
     Active Substance: TORSEMIDE
     Dosage: 100 MG (1/2 TABLET) QD
     Route: 048
  18. TRAMATOL [Concomitant]
     Dosage: 50 MG, Q6H PRN
     Route: 048
  19. FEXOFENADINE W/PSEUDOEPHEDRINE [Concomitant]
     Active Substance: FEXOFENADINE\PSEUDOEPHEDRINE
     Dosage: 1 TABLET, QD
     Route: 048
  20. ASPIRIN. [Concomitant]
     Active Substance: ASPIRIN
     Dosage: 81 MG, QD
     Route: 048
  21. ULORIC [Concomitant]
     Active Substance: FEBUXOSTAT
     Dosage: 80 MG, Q2WEEK (SUN/THURS)

REACTIONS (1)
  - Prostate cancer recurrent [Unknown]
